FAERS Safety Report 24079071 (Version 2)
Quarter: 2024Q3

REPORT INFORMATION
  Report Type: Report from Study
  Country: US (occurrence: US)
  Receive Date: 20240711
  Receipt Date: 20240717
  Transmission Date: 20241017
  Serious: Yes (Hospitalization, Other)
  Sender: JOHNSON AND JOHNSON
  Company Number: US-JNJFOC-20240717673

PATIENT
  Age: 73 Year
  Sex: Female
  Weight: 99.88 kg

DRUGS (8)
  1. SPRAVATO [Suspect]
     Active Substance: ESKETAMINE
     Indication: Depression
     Dosage: 56 MG, TOTAL OF 2 DOSES
     Dates: start: 20210112, end: 20240115
  2. SPRAVATO [Suspect]
     Active Substance: ESKETAMINE
     Dosage: 84 MG, TOTAL OF 150 DOSES
     Dates: start: 20210119, end: 20240221
  3. SPRAVATO [Suspect]
     Active Substance: ESKETAMINE
     Dosage: 84 MG, TOTAL OF 1 DOSES
     Dates: start: 20240705, end: 20240705
  4. XANAX [Concomitant]
     Active Substance: ALPRAZOLAM
     Indication: Anxiety
     Dosage: CURRENT
     Route: 048
     Dates: start: 20231029
  5. PRAZOSIN [Concomitant]
     Active Substance: PRAZOSIN
     Indication: Hypertension
     Dosage: CURRENT
     Route: 048
     Dates: start: 20230925
  6. GUANFACINE [Concomitant]
     Active Substance: GUANFACINE
     Indication: Hypertension
     Dosage: CURRENT
     Route: 048
     Dates: start: 20230925
  7. CYMBALTA [Concomitant]
     Active Substance: DULOXETINE HYDROCHLORIDE
     Indication: Depression
     Dosage: CURRENT
     Route: 048
     Dates: start: 20230925
  8. LEVOTHYROXINE [Concomitant]
     Active Substance: LEVOTHYROXINE\LEVOTHYROXINE SODIUM
     Indication: Hypothyroidism
     Dosage: THERAPY END DATE CONFLICTINGLY REPORTED AS 17-JAN-202
     Route: 048
     Dates: start: 20201220

REACTIONS (1)
  - Hypertension [Recovered/Resolved]

NARRATIVE: CASE EVENT DATE: 20240705
